FAERS Safety Report 10184530 (Version 1)
Quarter: 2014Q2

REPORT INFORMATION
  Report Type: Report from Study
  Country: US (occurrence: US)
  Receive Date: 20140521
  Receipt Date: 20140521
  Transmission Date: 20141212
  Serious: Yes (Other)
  Sender: FDA-Public Use
  Company Number: US-ROCHE-1404070

PATIENT
  Sex: Female
  Weight: 48 kg

DRUGS (2)
  1. NUTROPIN [Suspect]
     Indication: BODY HEIGHT BELOW NORMAL
     Route: 058
  2. VIVELLE TRANSDERMAL SYSTEM [Concomitant]
     Route: 062

REACTIONS (3)
  - Growth retardation [Unknown]
  - Headache [Unknown]
  - Drug dose omission [Unknown]
